FAERS Safety Report 5225734-0 (Version None)
Quarter: 2007Q1

REPORT INFORMATION
  Report Type: 
  Country: None (occurrence: None)
  Receive Date: 20070131
  Receipt Date: 20070131
  Transmission Date: 20070707
  Serious: Yes (Hospitalization)
  Sender: FDA-Public Use
  Company Number: None

PATIENT
  Age: 83 Year
  Sex: Female
  Weight: 46.2669 kg

DRUGS (7)
  1. TARCEVA [Suspect]
     Indication: BREAST CANCER METASTATIC
     Dosage: 150 MG PO  DAILY
     Route: 048
     Dates: start: 20070103, end: 20070125
  2. FEMARA [Suspect]
     Indication: BREAST CANCER METASTATIC
     Dosage: 2.5 MG PO DAILY
     Route: 048
     Dates: start: 20070103, end: 20070127
  3. AVALIDE [Concomitant]
  4. ATENOLOL [Concomitant]
  5. DILTIA XT [Concomitant]
  6. PREVACID [Concomitant]
  7. ASPIRIN [Concomitant]

REACTIONS (7)
  - DEHYDRATION [None]
  - DIARRHOEA [None]
  - ECHOCARDIOGRAM ABNORMAL [None]
  - MASS [None]
  - MITRAL VALVE CALCIFICATION [None]
  - PRESYNCOPE [None]
  - REFUSAL OF TREATMENT BY PATIENT [None]
